FAERS Safety Report 25646390 (Version 1)
Quarter: 2025Q3

REPORT INFORMATION
  Report Type: Spontaneous
  Country: EU (occurrence: EU)
  Receive Date: 20250805
  Receipt Date: 20250805
  Transmission Date: 20251021
  Serious: Yes (Other)
  Sender: NOVARTIS
  Company Number: EU-002147023-NVSC2025FR107217

PATIENT
  Sex: Female

DRUGS (1)
  1. BEOVU [Suspect]
     Active Substance: BROLUCIZUMAB-DBLL
     Indication: Diabetic retinal oedema
     Route: 031
     Dates: end: 20250109

REACTIONS (8)
  - Retinal occlusive vasculitis [Unknown]
  - Retinal degeneration [Unknown]
  - Vitritis [Unknown]
  - Eye haemorrhage [Unknown]
  - Eye pain [Unknown]
  - Visual acuity reduced [Unknown]
  - Corneal oedema [Unknown]
  - Anterior chamber flare [Unknown]

NARRATIVE: CASE EVENT DATE: 20250120
